FAERS Safety Report 8436768-7 (Version None)
Quarter: 2012Q2

REPORT INFORMATION
  Report Type: 
  Country: None (occurrence: None)
  Receive Date: 20120614
  Receipt Date: 20120612
  Transmission Date: 20120825
  Serious: Yes (Death, Hospitalization)
  Sender: FDA-Public Use
  Company Number: US-PFIZER INC-2012142041

PATIENT
  Sex: Female
  Weight: 74.5 kg

DRUGS (4)
  1. REVATIO [Suspect]
  2. WARFARIN SODIUM [Concomitant]
  3. TYVASO [Suspect]
     Indication: PULMONARY ARTERIAL HYPERTENSION
     Dosage: 54MCG, 4 IN 1
     Route: 055
     Dates: start: 20091105
  4. ACETYLSALICYLIC ACID [Concomitant]

REACTIONS (2)
  - DEATH [None]
  - SOMNOLENCE [None]
